FAERS Safety Report 6295319-6 (Version None)
Quarter: 2009Q3

REPORT INFORMATION
  Report Type: 
  Country: None (occurrence: None)
  Receive Date: 20090803
  Receipt Date: 20090727
  Transmission Date: 20100115
  Serious: Yes (Other)
  Sender: FDA-Public Use
  Company Number: ES-AVENTIS-200917543GDDC

PATIENT
  Age: 62 Year
  Sex: Male

DRUGS (4)
  1. AMARYL [Suspect]
     Route: 048
     Dates: start: 20080601
  2. CELEBREX [Suspect]
     Route: 048
     Dates: start: 20070801
  3. CYMBALTA [Suspect]
     Indication: ANXIETY
     Route: 048
     Dates: start: 20080401
  4. PREVENCOR                          /01326102/ [Suspect]
     Route: 048
     Dates: start: 20071101

REACTIONS (1)
  - ERECTILE DYSFUNCTION [None]
